FAERS Safety Report 14911896 (Version 1)
Quarter: 2018Q2

REPORT INFORMATION
  Report Type: Spontaneous
  Country: FR (occurrence: FR)
  Receive Date: 20180518
  Receipt Date: 20180518
  Transmission Date: 20180711
  Serious: Yes (Other)
  Sender: FDA-Public Use
  Company Number: FR-MERCK KGAA-2048039

PATIENT
  Age: 29 Year
  Sex: Female

DRUGS (1)
  1. NOVOTHYROX [Suspect]
     Active Substance: LEVOTHYROXINE SODIUM
     Indication: PRODUCT USED FOR UNKNOWN INDICATION

REACTIONS (25)
  - Eating disorder [None]
  - Abdominal pain upper [None]
  - Coccydynia [None]
  - Complex regional pain syndrome [None]
  - Blood thyroid stimulating hormone increased [Recovered/Resolved]
  - Depression [None]
  - Fibromyalgia [None]
  - Headache [None]
  - Mood altered [None]
  - Crohn^s disease [None]
  - Arthralgia [None]
  - Pain [None]
  - Sleep disorder [None]
  - Social avoidant behaviour [None]
  - Dysstasia [None]
  - Hidradenitis [None]
  - Cardiac disorder [None]
  - Dizziness [None]
  - Musculoskeletal stiffness [None]
  - Gait disturbance [None]
  - Dysgraphia [None]
  - Fatigue [None]
  - Vision blurred [None]
  - Feeling abnormal [None]
  - Sexual dysfunction [None]

NARRATIVE: CASE EVENT DATE: 201705
